FAERS Safety Report 25142702 (Version 1)
Quarter: 2025Q1

REPORT INFORMATION
  Report Type: Report from Study
  Country: US (occurrence: US)
  Receive Date: 20250331
  Receipt Date: 20250331
  Transmission Date: 20250408
  Serious: Yes (Disabling)
  Sender: TAKEDA
  Company Number: US-TAKEDA-2025TUS021524

PATIENT
  Age: 53 Year
  Sex: Male
  Weight: 110 kg

DRUGS (6)
  1. TEDUGLUTIDE [Suspect]
     Active Substance: TEDUGLUTIDE
     Indication: Short-bowel syndrome
     Dosage: 0.5 MILLILITER, QD
     Dates: start: 202404
  2. TEDUGLUTIDE [Suspect]
     Active Substance: TEDUGLUTIDE
     Dosage: 0.56 MILLILITER, QD
     Dates: start: 20250121
  3. TEDUGLUTIDE [Suspect]
     Active Substance: TEDUGLUTIDE
     Dosage: UNK UNK, QD
  4. TEDUGLUTIDE [Suspect]
     Active Substance: TEDUGLUTIDE
  5. AMITRIPTYLINE HYDROCHLORIDE [Concomitant]
     Active Substance: AMITRIPTYLINE HYDROCHLORIDE
  6. LISINOPRIL [Concomitant]
     Active Substance: LISINOPRIL

REACTIONS (6)
  - Frequent bowel movements [Recovering/Resolving]
  - Diarrhoea [Recovering/Resolving]
  - Fatigue [Recovering/Resolving]
  - Muscle spasms [Recovering/Resolving]
  - Weight increased [Unknown]
  - Incorrect dose administered [Unknown]

NARRATIVE: CASE EVENT DATE: 20250121
